FAERS Safety Report 4917239-9 (Version None)
Quarter: 2006Q1

REPORT INFORMATION
  Report Type: 
  Country: None (occurrence: None)
  Receive Date: 20060221
  Receipt Date: 20051014
  Transmission Date: 20060701
  Serious: Yes (Hospitalization, Other)
  Sender: FDA-Public Use
  Company Number: US-MERCK-0510USA07516

PATIENT
  Age: 63 Year
  Sex: Female
  Weight: 55 kg

DRUGS (6)
  1. VIOXX [Suspect]
     Indication: ARTHRITIS
     Route: 048
     Dates: start: 20000405, end: 20040930
  2. VIOXX [Suspect]
     Route: 048
     Dates: start: 20000405, end: 20040927
  3. LEVOXYL [Concomitant]
     Indication: HYPOTHYROIDISM
     Route: 048
  4. LIPITOR [Concomitant]
     Indication: HYPERLIPIDAEMIA
     Route: 048
  5. PEPCID [Concomitant]
     Indication: GASTROOESOPHAGEAL REFLUX DISEASE
     Route: 048
  6. PREMARIN [Concomitant]
     Route: 048

REACTIONS (19)
  - ANAEMIA [None]
  - CEREBRAL INFARCTION [None]
  - CEREBROVASCULAR ACCIDENT [None]
  - CHEST PAIN [None]
  - DEPRESSION [None]
  - DRUG LEVEL CHANGED [None]
  - DRUG LEVEL FLUCTUATING [None]
  - DYSPNOEA EXERTIONAL [None]
  - EYE MOVEMENT DISORDER [None]
  - FEELING ABNORMAL [None]
  - HYPERTROPHY [None]
  - LACUNAR INFARCTION [None]
  - MENTAL STATUS CHANGES [None]
  - SLEEP DISORDER [None]
  - STATUS EPILEPTICUS [None]
  - SYNCOPE [None]
  - TREMOR [None]
  - VISION BLURRED [None]
  - WEIGHT INCREASED [None]
